FAERS Safety Report 5997077-9 (Version None)
Quarter: 2008Q4

REPORT INFORMATION
  Report Type: 
  Country: None (occurrence: None)
  Receive Date: 20081212
  Receipt Date: 20081103
  Transmission Date: 20090506
  Serious: No
  Sender: FDA-Public Use
  Company Number: US-ABBOTT-08P-163-0485244-00

PATIENT
  Sex: Female
  Weight: 93.07 kg

DRUGS (4)
  1. HUMIRA [Suspect]
     Indication: RHEUMATOID ARTHRITIS
     Route: 058
     Dates: start: 20081006
  2. PREDNISONE TAB [Concomitant]
     Indication: RHEUMATOID ARTHRITIS
     Route: 048
     Dates: start: 20060101
  3. HYDROXYCHLOROQUINE SULFATE [Concomitant]
     Indication: RHEUMATOID ARTHRITIS
     Route: 048
  4. CARISOPRODOL [Concomitant]
     Indication: MUSCLE SPASMS
     Route: 048

REACTIONS (2)
  - INCORRECT DOSE ADMINISTERED [None]
  - INJECTION SITE HAEMORRHAGE [None]
